FAERS Safety Report 8961305 (Version 2)
Quarter: 2012Q4

REPORT INFORMATION
  Report Type: 
  Country: US (occurrence: US)
  Receive Date: 20121212
  Receipt Date: 20121218
  Transmission Date: 20130627
  Serious: Yes (Death, Hospitalization, Other)
  Sender: FDA-Public Use
  Company Number: US-ACTELION-A-NJ2012-75848

PATIENT
  Age: 52 Year
  Sex: Female

DRUGS (3)
  1. VELETRI [Suspect]
     Indication: PULMONARY ARTERIAL HYPERTENSION
     Dosage: 5.5 ng/kg, per min
     Route: 041
     Dates: start: 20121129
  2. VENTAVIS [Concomitant]
     Indication: PULMONARY ARTERIAL HYPERTENSION
     Route: 055
  3. COUMADIN [Concomitant]

REACTIONS (5)
  - Sepsis [Fatal]
  - Hypotension [Fatal]
  - Renal failure [Fatal]
  - Hyperkalaemia [Fatal]
  - Hypoxia [Fatal]
